FAERS Safety Report 21762502 (Version 5)
Quarter: 2023Q4

REPORT INFORMATION
  Report Type: Spontaneous
  Country: US (occurrence: US)
  Receive Date: 20221221
  Receipt Date: 20231128
  Transmission Date: 20240110
  Serious: No
  Sender: FDA-Public Use
  Company Number: US-PFIZER INC-202100966716

PATIENT
  Age: 67 Year
  Sex: Male
  Weight: 104.33 kg

DRUGS (3)
  1. TIKOSYN [Suspect]
     Active Substance: DOFETILIDE
     Indication: Heart rate
     Dosage: 250 UG, 2X/DAY (TWICE A DAY)
     Route: 048
     Dates: start: 2021
  2. TIKOSYN [Suspect]
     Active Substance: DOFETILIDE
     Indication: Atrial fibrillation
  3. TIKOSYN [Suspect]
     Active Substance: DOFETILIDE
     Indication: Cardiac failure congestive

REACTIONS (5)
  - Cough [Unknown]
  - Sputum discoloured [Unknown]
  - Head discomfort [Unknown]
  - Dyspnoea [Unknown]
  - Wrong strength [Unknown]
